FAERS Safety Report 20837128 (Version 2)
Quarter: 2022Q2

REPORT INFORMATION
  Report Type: Spontaneous
  Country: CN (occurrence: CN)
  Receive Date: 20220517
  Receipt Date: 20220523
  Transmission Date: 20220721
  Serious: Yes (Life-Threatening, Hospitalization, Other)
  Sender: FDA-Public Use
  Company Number: CN-SA-2022SA172137

PATIENT
  Age: 29 Year
  Sex: Female

DRUGS (15)
  1. HYDROXYCHLOROQUINE [Suspect]
     Active Substance: HYDROXYCHLOROQUINE
     Indication: Antiphospholipid syndrome
     Dosage: 100 MG, TID
  2. PREDNISONE [Suspect]
     Active Substance: PREDNISONE
     Indication: Antiphospholipid syndrome
     Dosage: 7.5 MG, QD
  3. PREDNISONE [Suspect]
     Active Substance: PREDNISONE
     Dosage: 10 MG, BID
  4. PREDNISONE [Suspect]
     Active Substance: PREDNISONE
     Dosage: 20 MG, BID
     Route: 048
  5. AZITHROMYCIN [Suspect]
     Active Substance: AZITHROMYCIN
     Indication: Infection prophylaxis
     Dosage: 0.5 G, QD
  6. ENOXAPARIN SODIUM [Suspect]
     Active Substance: ENOXAPARIN SODIUM
     Indication: Anticoagulant therapy
     Dosage: 4000 U, SUBTANEOUS INJECTION
     Route: 058
  7. ACETAMINOPHEN [Suspect]
     Active Substance: ACETAMINOPHEN
     Dosage: UNK
  8. METHYLPREDNISOLONE [Suspect]
     Active Substance: METHYLPREDNISOLONE
     Dosage: 30 MG, BID
     Route: 042
  9. METHYLPREDNISOLONE [Suspect]
     Active Substance: METHYLPREDNISOLONE
     Dosage: GRADUALLY TAPERED
  10. CYCLOSPORINE [Suspect]
     Active Substance: CYCLOSPORINE
     Indication: Antiphospholipid syndrome
     Dosage: 50 MG, TID
  11. DYDROGESTERONE [Suspect]
     Active Substance: DYDROGESTERONE
     Indication: Vaginal haemorrhage
     Dosage: 10 MG, TID
  12. CEFOPERAZONE SODIUM\SULBACTAM SODIUM [Suspect]
     Active Substance: CEFOPERAZONE SODIUM\SULBACTAM SODIUM
     Indication: Evidence based treatment
     Dosage: 2 G PER DOSE
  13. IMMUNE GLOBULIN NOS [Suspect]
     Active Substance: IMMUNE GLOBULIN NOS
     Dosage: 20 MG, QD
     Route: 042
  14. ALBUMIN (HUMAN) [Suspect]
     Active Substance: ALBUMIN HUMAN
     Indication: Hypoalbuminaemia
     Dosage: UNK
     Route: 042
  15. ASPIRIN [Concomitant]
     Active Substance: ASPIRIN
     Indication: Antiphospholipid syndrome
     Dosage: 25 MG, TID,ENTERIC-COATED TABLETS

REACTIONS (19)
  - Impetigo herpetiformis [Recovered/Resolved]
  - Erythema [Recovered/Resolved]
  - Pyrexia [Recovered/Resolved]
  - Pustule [Recovered/Resolved]
  - Rash erythematous [Recovered/Resolved]
  - Chills [Recovered/Resolved]
  - Vaginal haemorrhage [Recovered/Resolved]
  - Pain of skin [Recovered/Resolved]
  - Skin burning sensation [Recovered/Resolved]
  - Sleep disorder [Recovered/Resolved]
  - Tachycardia [Recovered/Resolved]
  - Skin plaque [Recovered/Resolved]
  - Blister [Recovered/Resolved]
  - Leukocytosis [Recovered/Resolved]
  - Neutrophilia [Recovered/Resolved]
  - Hypoalbuminaemia [Recovered/Resolved]
  - Rash [Recovered/Resolved]
  - Skin exfoliation [Recovered/Resolved]
  - Exposure during pregnancy [Unknown]
